FAERS Safety Report 5152648-7 (Version None)
Quarter: 2006Q4

REPORT INFORMATION
  Report Type: 
  Country: None (occurrence: None)
  Receive Date: 20061109
  Receipt Date: 20061029
  Transmission Date: 20070319
  Serious: Yes (Hospitalization)
  Sender: FDA-Public Use
  Company Number: 2006132664

PATIENT
  Sex: Male
  Weight: 77.1115 kg

DRUGS (3)
  1. BENADRYL [Suspect]
     Indication: PRURITUS
     Dosage: ORAL
     Route: 048
     Dates: start: 20061028
  2. DRUG, UNSPECIFIED (DRUG, UNSPECIFIED) [Suspect]
     Dates: start: 20061028
  3. DRUG, UNSPECIFIED [Concomitant]

REACTIONS (1)
  - ADVERSE DRUG REACTION [None]
